FAERS Safety Report 7998931-9 (Version None)
Quarter: 2011Q4

REPORT INFORMATION
  Report Type: 
  Country: None (occurrence: None)
  Receive Date: 20111221
  Receipt Date: 20111216
  Transmission Date: 20120403
  Serious: Yes (Hospitalization)
  Sender: FDA-Public Use
  Company Number: IT-GLAXOSMITHKLINE-B0770408A

PATIENT
  Sex: Male

DRUGS (8)
  1. ALLOPURINOL [Suspect]
     Indication: HYPERURICAEMIA
     Dosage: 1U PER DAY
     Route: 048
     Dates: start: 20070101, end: 20111030
  2. ALDACTONE [Suspect]
     Indication: HYPERTENSION
     Dosage: 25MG PER DAY
     Route: 048
     Dates: start: 20070101, end: 20111030
  3. PLAVIX [Concomitant]
  4. LASIX [Suspect]
     Indication: HYPERTENSION
     Dosage: 25MG PER DAY
     Route: 048
     Dates: start: 20070101, end: 20111030
  5. RANITIDINE [Suspect]
     Indication: GASTROOESOPHAGEAL REFLUX DISEASE
     Dosage: 150MG PER DAY
     Route: 048
     Dates: start: 20070101, end: 20111030
  6. CARVEDILOL [Suspect]
     Indication: HYPERTENSION
     Dosage: 25MG PER DAY
     Route: 048
     Dates: start: 20070101, end: 20111030
  7. MAGNESIUM HYDROXIDE TAB [Concomitant]
     Route: 065
  8. ESKIM [Concomitant]

REACTIONS (3)
  - HYPONATRAEMIA [None]
  - BRADYCARDIA [None]
  - SYNCOPE [None]
